FAERS Safety Report 8812258 (Version 1)
Quarter: 2012Q4

REPORT INFORMATION
  Report Type: 
  Country: US (occurrence: US)
  Receive Date: 20120927
  Receipt Date: 20120927
  Transmission Date: 20130627
  Serious: Yes (Hospitalization)
  Sender: FDA-Public Use
  Company Number: US-ROCHE-1124286

PATIENT
  Age: 53 Year
  Sex: Female

DRUGS (6)
  1. AVASTIN [Suspect]
     Indication: PANCREATIC CARCINOMA
     Route: 065
     Dates: start: 20050412
  2. XELODA [Suspect]
     Indication: PANCREATIC CARCINOMA
     Route: 065
     Dates: start: 20050323
  3. GEMCITABINE [Concomitant]
     Route: 065
     Dates: start: 20050323
  4. OXALIPLATIN [Concomitant]
  5. 5-FU [Concomitant]
  6. LEUCOVORIN [Concomitant]

REACTIONS (2)
  - Toxicity to various agents [Unknown]
  - Disease progression [Unknown]
